FAERS Safety Report 9857352 (Version 1)
Quarter: 2014Q1

REPORT INFORMATION
  Report Type: Spontaneous
  Country: US (occurrence: US)
  Receive Date: 20140130
  Receipt Date: 20140130
  Transmission Date: 20141002
  Serious: Yes (Hospitalization)
  Sender: FDA-Public Use
  Company Number: US-ROCHE-1341479

PATIENT
  Age: 51 Year
  Sex: Male

DRUGS (14)
  1. MYCOPHENOLATE MOFETIL [Suspect]
     Indication: PROPHYLAXIS AGAINST TRANSPLANT REJECTION
     Route: 065
  2. MILRINONE [Concomitant]
     Route: 065
  3. VANCOMYCIN [Concomitant]
  4. PREDNISONE [Concomitant]
     Route: 065
  5. TACROLIMUS [Concomitant]
     Route: 065
  6. ACYCLOVIR [Concomitant]
     Route: 065
  7. ITRACONAZOLE [Concomitant]
     Route: 065
  8. SULFAMETHOXAZOLE/TRIMETHOPRIM [Concomitant]
     Route: 065
  9. HEPARIN [Concomitant]
     Route: 058
  10. OMEPRAZOL [Concomitant]
     Route: 065
  11. PRAVASTATIN [Concomitant]
     Route: 065
  12. FUROSEMIDE [Concomitant]
     Route: 065
  13. CEFEPIME [Concomitant]
  14. METHYLPREDNISOLONE [Concomitant]
     Route: 065

REACTIONS (2)
  - Pulmonary haemorrhage [Recovering/Resolving]
  - Capillaritis [Recovering/Resolving]
